FAERS Safety Report 18866269 (Version 1)
Quarter: 2021Q1

REPORT INFORMATION
  Report Type: Spontaneous
  Country: US (occurrence: US)
  Receive Date: 20210208
  Receipt Date: 20210208
  Transmission Date: 20210420
  Serious: Yes (Hospitalization)
  Sender: FDA-Public Use
  Company Number: None

PATIENT
  Sex: Male

DRUGS (14)
  1. METOPROL SUC ER [Concomitant]
     Active Substance: METOPROLOL SUCCINATE
  2. BENZONATATE. [Concomitant]
     Active Substance: BENZONATATE
  3. HYDROCHLOROT [Concomitant]
     Active Substance: HYDROCHLOROTHIAZIDE
  4. CYCLOBENZAPR [Concomitant]
     Active Substance: CYCLOBENZAPRINE
  5. FLUOCINONIDE. [Concomitant]
     Active Substance: FLUOCINONIDE
  6. AZITHROMYCIN ANHYDROUS. [Concomitant]
     Active Substance: AZITHROMYCIN ANHYDROUS
  7. PREDNISONE. [Concomitant]
     Active Substance: PREDNISONE
  8. FOLIC ACID. [Concomitant]
     Active Substance: FOLIC ACID
  9. PROMETHAZINE [Concomitant]
     Active Substance: PROMETHAZINE HYDROCHLORIDE
  10. XELJANZ XR [Suspect]
     Active Substance: TOFACITINIB CITRATE
     Indication: RHEUMATOID ARTHRITIS
     Route: 048
  11. METHOTREXATE. [Concomitant]
     Active Substance: METHOTREXATE
  12. ALBUTEROL AER [Concomitant]
     Active Substance: ALBUTEROL
  13. ELIQUIS [Concomitant]
     Active Substance: APIXABAN
  14. MUPIROCIN. [Concomitant]
     Active Substance: MUPIROCIN

REACTIONS (4)
  - Pain in extremity [None]
  - COVID-19 [None]
  - Arthralgia [None]
  - Therapy interrupted [None]
